FAERS Safety Report 4582310-0 (Version None)
Quarter: 2005Q1

REPORT INFORMATION
  Report Type: 
  Country: None (occurrence: None)
  Receive Date: 20050214
  Receipt Date: 20030331
  Transmission Date: 20050727
  Serious: Yes (Hospitalization, Other)
  Sender: FDA-Public Use
  Company Number: US-AMGEN-US045187

PATIENT
  Age: 51 Year
  Sex: Female

DRUGS (3)
  1. ETANERCEPT [Suspect]
     Indication: WEGENER'S GRANULOMATOSIS
     Route: 058
  2. CYCLOPHOSPHAMIDE [Suspect]
  3. METHOTREXATE [Concomitant]

REACTIONS (3)
  - ABDOMINAL PAIN [None]
  - DRUG INEFFECTIVE [None]
  - RENAL CELL CARCINOMA STAGE UNSPECIFIED [None]
